FAERS Safety Report 6597097-X (Version None)
Quarter: 2010Q1

REPORT INFORMATION
  Report Type: 
  Country: None (occurrence: None)
  Receive Date: 20100219
  Receipt Date: 20100219
  Transmission Date: 20100710
  Serious: Yes (Life-Threatening, Disabling, Other)
  Sender: FDA-Public Use
  Company Number: None

PATIENT
  Age: 46 Year
  Sex: Female
  Weight: 72.5755 kg

DRUGS (2)
  1. SAVELLA [Suspect]
     Indication: BIPOLAR DISORDER
     Dosage: 12.5, 25, 50 TWICE A DAY PO 12.5 ONCE A DAY PO
     Route: 048
     Dates: start: 20100120, end: 20100201
  2. SAVELLA [Suspect]
     Indication: FIBROMYALGIA
     Dosage: 12.5, 25, 50 TWICE A DAY PO 12.5 ONCE A DAY PO
     Route: 048
     Dates: start: 20100120, end: 20100201

REACTIONS (7)
  - ALCOHOL USE [None]
  - CONDITION AGGRAVATED [None]
  - FIBROMYALGIA [None]
  - INTENTIONAL SELF-INJURY [None]
  - PAIN [None]
  - PRODUCT QUALITY ISSUE [None]
  - SUICIDAL IDEATION [None]
